FAERS Safety Report 17156210 (Version 1)
Quarter: 2019Q4

REPORT INFORMATION
  Report Type: Spontaneous
  Country: GB (occurrence: GB)
  Receive Date: 20191216
  Receipt Date: 20191216
  Transmission Date: 20200122
  Serious: Yes (Other)
  Sender: FDA-Public Use
  Company Number: GB-SUN PHARMACEUTICAL INDUSTRIES LTD-2019RR-230844

PATIENT
  Age: 84 Year
  Sex: Male

DRUGS (9)
  1. CODEINE PHOSPHATE [Concomitant]
     Active Substance: CODEINE PHOSPHATE
     Indication: ILL-DEFINED DISORDER
     Dosage: UNK
     Route: 065
  2. AMLODIPINE [Concomitant]
     Active Substance: AMLODIPINE BESYLATE
     Indication: ILL-DEFINED DISORDER
     Dosage: UNK
     Route: 065
  3. SODIUM HYDROGEN CARBONATE [Concomitant]
     Active Substance: SODIUM BICARBONATE
     Indication: ILL-DEFINED DISORDER
     Dosage: UNK
     Route: 065
  4. FOLIC ACID. [Concomitant]
     Active Substance: FOLIC ACID
     Indication: ILL-DEFINED DISORDER
     Dosage: ()
     Route: 065
  5. CIPROFLOXACIN. [Suspect]
     Active Substance: CIPROFLOXACIN
     Indication: PRODUCT USED FOR UNKNOWN INDICATION
     Dosage: 500 MILLIGRAM BD
     Route: 065
     Dates: start: 20190304, end: 20190325
  6. BISOPROLOL [Concomitant]
     Active Substance: BISOPROLOL
     Indication: ILL-DEFINED DISORDER
     Dosage: UNK
     Route: 065
  7. LACTULOSE. [Concomitant]
     Active Substance: LACTULOSE
     Indication: ILL-DEFINED DISORDER
     Dosage: UNK
     Route: 065
  8. CALCITRIOL. [Concomitant]
     Active Substance: CALCITRIOL
     Indication: ILL-DEFINED DISORDER
     Dosage: UNK
     Route: 065
  9. OMEPRAZOLE. [Concomitant]
     Active Substance: OMEPRAZOLE
     Indication: ILL-DEFINED DISORDER
     Dosage: UNK
     Route: 065

REACTIONS (2)
  - Tendonitis [Recovered/Resolved]
  - Clostridium difficile infection [Recovered/Resolved]

NARRATIVE: CASE EVENT DATE: 20190317
